FAERS Safety Report 8844297 (Version 1)
Quarter: 2012Q4

REPORT INFORMATION
  Report Type: 
  Country: US (occurrence: US)
  Receive Date: 20121017
  Receipt Date: 20121017
  Transmission Date: 20130627
  Serious: No
  Sender: FDA-Public Use
  Company Number: US-009507513-1210USA006177

PATIENT
  Age: 62 Year
  Sex: Female

DRUGS (2)
  1. JANUVIA [Suspect]
     Indication: DIABETES MELLITUS
     Dosage: 100 mg, once daily
     Route: 048
     Dates: start: 20120927
  2. METFORMIN [Concomitant]
     Dosage: 1000 mg, bid

REACTIONS (2)
  - Rash [Unknown]
  - Oedema peripheral [Unknown]
